FAERS Safety Report 7383078-5 (Version None)
Quarter: 2011Q1

REPORT INFORMATION
  Report Type: 
  Country: None (occurrence: None)
  Receive Date: 20110328
  Receipt Date: 20110328
  Transmission Date: 20110831
  Serious: No
  Sender: FDA-Public Use
  Company Number: None

PATIENT
  Age: 82 Year
  Sex: Female

DRUGS (2)
  1. FLECAINIDE ACETATE [Suspect]
  2. PACEMAKER [Suspect]

REACTIONS (9)
  - DYSPNOEA [None]
  - DEVICE PACING ISSUE [None]
  - CARDIOACTIVE DRUG LEVEL INCREASED [None]
  - DIZZINESS [None]
  - HEART RATE DECREASED [None]
  - DEVICE CAPTURING ISSUE [None]
  - BLOOD SODIUM INCREASED [None]
  - BRAIN NATRIURETIC PEPTIDE INCREASED [None]
  - ELECTROCARDIOGRAM QRS COMPLEX PROLONGED [None]
